FAERS Safety Report 18203214 (Version 4)
Quarter: 2021Q3

REPORT INFORMATION
  Report Type: Spontaneous
  Country: US (occurrence: US)
  Receive Date: 20200827
  Receipt Date: 20210730
  Transmission Date: 20211014
  Serious: No
  Sender: FDA-Public Use
  Company Number: US-PFIZER INC-2020327848

PATIENT
  Age: 8 Year
  Sex: Male
  Weight: 15.42 kg

DRUGS (1)
  1. GENOTROPIN [Suspect]
     Active Substance: SOMATROPIN
     Indication: BLOOD GROWTH HORMONE
     Dosage: 0.4 MG, 1X/DAY (0.4MG INJECTION ONCE A DAY)
     Dates: start: 20200611

REACTIONS (2)
  - Wrong technique in device usage process [Unknown]
  - Product dose omission issue [Unknown]

NARRATIVE: CASE EVENT DATE: 20200823
